FAERS Safety Report 8841944 (Version 1)
Quarter: 2012Q4

REPORT INFORMATION
  Report Type: Spontaneous
  Country: US (occurrence: None)
  Receive Date: 20121015
  Receipt Date: 20121015
  Transmission Date: 20130627
  Serious: Yes (Hospitalization)
  Sender: FDA-Public Use
  Company Number: None

PATIENT
  Age: 80 Year
  Sex: Female
  Weight: 64.41 kg

DRUGS (1)
  1. ARMOUR THYROID [Suspect]
     Dosage: 1/2 tab, daily
     Dates: start: 20120723

REACTIONS (3)
  - Feeling hot [None]
  - Asthenia [None]
  - Blood pressure increased [None]
